FAERS Safety Report 6825391-3 (Version None)
Quarter: 2010Q3

REPORT INFORMATION
  Report Type: 
  Country: None (occurrence: None)
  Receive Date: 20100708
  Receipt Date: 20061208
  Transmission Date: 20110219
  Serious: No
  Sender: FDA-Public Use
  Company Number: US-PFIZER INC-2006153820

PATIENT
  Sex: Male
  Weight: 102.06 kg

DRUGS (7)
  1. CHANTIX [Suspect]
     Indication: SMOKING CESSATION THERAPY
     Dates: start: 20060101
  2. ADVAIR DISKUS 100/50 [Concomitant]
  3. SPIRIVA [Concomitant]
  4. PREDNISONE [Concomitant]
  5. ALBUTEROL [Concomitant]
  6. MONTELUKAST [Concomitant]
  7. NORVASC [Concomitant]

REACTIONS (3)
  - ABDOMINAL DISTENSION [None]
  - DYSPNOEA [None]
  - FLATULENCE [None]
